FAERS Safety Report 4906060-3 (Version None)
Quarter: 2006Q1

REPORT INFORMATION
  Report Type: 
  Country: None (occurrence: None)
  Receive Date: 20060207
  Receipt Date: 20060125
  Transmission Date: 20060701
  Serious: Yes (Death, Hospitalization, Other)
  Sender: FDA-Public Use
  Company Number: GXKR2006JP00684

PATIENT
  Age: 70 Year
  Sex: Male

DRUGS (6)
  1. RIMACTANE [Suspect]
     Indication: PULMONARY TUBERCULOSIS
     Dates: start: 20030329, end: 20030618
  2. RIMACTANE [Suspect]
     Indication: PULMONARY TUBERCULOSIS
     Dates: start: 20030701, end: 20040701
  3. ISONIAZID [Concomitant]
  4. STREPTOMYCIN [Concomitant]
  5. ANTIBIOTICS [Concomitant]
  6. LEVOFLOXACIN [Concomitant]

REACTIONS (7)
  - BRONCHOPULMONARY ASPERGILLOSIS [None]
  - GENERAL PHYSICAL HEALTH DETERIORATION [None]
  - HAEMOPTYSIS [None]
  - HEPATIC FUNCTION ABNORMAL [None]
  - MALNUTRITION [None]
  - RESPIRATORY FAILURE [None]
  - SHOCK [None]
